FAERS Safety Report 17393579 (Version 2)
Quarter: 2020Q1

REPORT INFORMATION
  Report Type: Report from Study
  Country: US (occurrence: US)
  Receive Date: 20200208
  Receipt Date: 20200318
  Transmission Date: 20200409
  Serious: Yes (Other)
  Sender: FDA-Public Use
  Company Number: US-MYLANLABS-2019M1048117

PATIENT
  Age: 43 Year
  Sex: Female
  Weight: 74.84 kg

DRUGS (4)
  1. GLATIRAMER ACETATE INJECTION [Suspect]
     Active Substance: GLATIRAMER ACETATE
     Dosage: 20 MG/ML, SQ DAILY
     Route: 058
  2. GLATIRAMER ACETATE INJECTION [Suspect]
     Active Substance: GLATIRAMER ACETATE
     Dosage: 20 MILLIGRAM, QD
     Route: 058
  3. BACLOFEN. [Concomitant]
     Active Substance: BACLOFEN
     Dosage: UNK
  4. GLATIRAMER ACETATE INJECTION [Suspect]
     Active Substance: GLATIRAMER ACETATE
     Indication: RELAPSING-REMITTING MULTIPLE SCLEROSIS
     Dosage: 20 MILLIGRAM, QD
     Route: 058

REACTIONS (11)
  - Nasopharyngitis [Unknown]
  - Ankle fracture [Unknown]
  - Tremor [Unknown]
  - Injection site pustule [Recovering/Resolving]
  - Injection site swelling [Recovered/Resolved]
  - Injection site mass [Unknown]
  - Chills [Unknown]
  - Product dose omission [Unknown]
  - Injection site bruising [Unknown]
  - Muscle spasticity [Recovered/Resolved]
  - Injection site erythema [Recovered/Resolved]

NARRATIVE: CASE EVENT DATE: 20200110
